FAERS Safety Report 9958618 (Version 2)
Quarter: 2014Q1

REPORT INFORMATION
  Report Type: Report from Study
  Country: JP (occurrence: JP)
  Receive Date: 20140305
  Receipt Date: 20140305
  Transmission Date: 20141002
  Serious: Yes (Hospitalization)
  Sender: FDA-Public Use
  Company Number: JP-ROCHE-1236878

PATIENT
  Sex: Male

DRUGS (9)
  1. METHOXY POLYETHYLENE GLYCOL-EPOETIN BETA [Suspect]
     Indication: NEPHROGENIC ANAEMIA
     Route: 058
     Dates: start: 20111228, end: 20120103
  2. ADALAT CR [Concomitant]
     Indication: DIABETIC NEPHROPATHY
     Route: 048
  3. SELOKEN [Concomitant]
     Indication: DIABETIC NEPHROPATHY
     Route: 048
  4. THYRADIN [Concomitant]
     Indication: DIABETIC NEPHROPATHY
     Route: 048
  5. ENALAPRIL [Concomitant]
     Indication: DIABETIC NEPHROPATHY
     Route: 048
  6. ALLOPURINOL [Concomitant]
     Indication: DIABETIC NEPHROPATHY
     Route: 048
  7. BAYASPIRIN [Concomitant]
     Route: 048
  8. DIART [Concomitant]
     Indication: DIABETIC NEPHROPATHY
     Route: 048
  9. LASIX [Concomitant]
     Indication: DIABETIC NEPHROPATHY
     Route: 048
     Dates: start: 20120829

REACTIONS (1)
  - Pleural effusion [Unknown]
